FAERS Safety Report 19398708 (Version 2)
Quarter: 2021Q3

REPORT INFORMATION
  Report Type: Spontaneous
  Country: US (occurrence: US)
  Receive Date: 20210610
  Receipt Date: 20210705
  Transmission Date: 20211014
  Serious: Yes (Hospitalization)
  Sender: FDA-Public Use
  Company Number: US-ASTRAZENECA-2021A493284

PATIENT
  Age: 27073 Day
  Sex: Female
  Weight: 114.8 kg

DRUGS (5)
  1. BYDUREON BCISE [Suspect]
     Active Substance: EXENATIDE
     Indication: TYPE 2 DIABETES MELLITUS
     Route: 058
     Dates: start: 2021
  2. BYDUREON [Suspect]
     Active Substance: EXENATIDE
     Indication: TYPE 2 DIABETES MELLITUS
     Route: 058
     Dates: end: 2021
  3. OTHER DIABETIC MEDICATIONS [Concomitant]
  4. INSULIN [Concomitant]
     Active Substance: INSULIN NOS
  5. OTHER STUFF [Concomitant]

REACTIONS (4)
  - Skin infection [Recovering/Resolving]
  - Device issue [Unknown]
  - Peripheral swelling [Recovering/Resolving]
  - Incorrect dose administered by device [Not Recovered/Not Resolved]

NARRATIVE: CASE EVENT DATE: 20210530
